FAERS Safety Report 11224383 (Version 2)
Quarter: 2015Q3

REPORT INFORMATION
  Report Type: Spontaneous
  Country: US (occurrence: US)
  Receive Date: 20150629
  Receipt Date: 20150724
  Transmission Date: 20151125
  Serious: Yes (Other)
  Sender: FDA-Public Use
  Company Number: US-BAYER-2015-362004

PATIENT
  Age: 22 Year
  Sex: Female

DRUGS (1)
  1. SKYLA [Suspect]
     Active Substance: LEVONORGESTREL
     Indication: CONTRACEPTION
     Dosage: 14 MCG/24HR, CONT
     Route: 015
     Dates: start: 20150408

REACTIONS (5)
  - Drug ineffective [None]
  - Abdominal pain lower [None]
  - Pregnancy with contraceptive device [None]
  - Menstruation irregular [None]
  - Hydrometra [None]

NARRATIVE: CASE EVENT DATE: 2015
